FAERS Safety Report 8845805 (Version 2)
Quarter: 2015Q3

REPORT INFORMATION
  Report Type: Report from Study
  Country: US (occurrence: US)
  Receive Date: 20121017
  Receipt Date: 20150813
  Transmission Date: 20151125
  Serious: Yes (Other)
  Sender: FDA-Public Use
  Company Number: US-ROCHE-1132894

PATIENT
  Sex: Female

DRUGS (2)
  1. NUTROPIN [Suspect]
     Active Substance: SOMATROPIN
     Indication: DWARFISM
     Route: 065
  2. PROTROPIN [Concomitant]
     Active Substance: SOMATREM
     Dosage: 1.8MG- SEVEN TIMES A WEEK.
     Route: 065

REACTIONS (1)
  - Impaired healing [Unknown]
